FAERS Safety Report 6697620-0 (Version None)
Quarter: 2010Q2

REPORT INFORMATION
  Report Type: 
  Country: None (occurrence: None)
  Receive Date: 20100422
  Receipt Date: 20100412
  Transmission Date: 20101027
  Serious: Yes (Hospitalization)
  Sender: FDA-Public Use
  Company Number: KV200801572

PATIENT
  Age: 46 Year
  Sex: Female
  Weight: 83.9 kg

DRUGS (11)
  1. MORPHINE SULFATE [Suspect]
     Indication: BACK PAIN
     Dosage: 60 MG, TID, ORAL; 120 MG, BID, ORAL
     Route: 048
     Dates: start: 20070101, end: 20080101
  2. MORPHINE SULFATE [Suspect]
     Indication: BACK PAIN
     Dosage: 60 MG, TID, ORAL; 120 MG, BID, ORAL
     Route: 048
     Dates: start: 20080509, end: 20080512
  3. CLONIDINE [Concomitant]
  4. OMEPRAZOLE [Concomitant]
  5. COZAAR [Concomitant]
  6. NORETHINDRONE [Concomitant]
  7. FUROSEMIDE [Concomitant]
  8. METOPROLOL (METOPROLOL) [Concomitant]
  9. SOMA [Concomitant]
  10. NORTRIPTYLINE HCL [Concomitant]
  11. POTASSIUM CHLORIDE [Concomitant]

REACTIONS (17)
  - APPARENT DEATH [None]
  - ASTHENIA [None]
  - CONFUSIONAL STATE [None]
  - DEHYDRATION [None]
  - DRUG SCREEN POSITIVE [None]
  - DYSARTHRIA [None]
  - HEPATIC ENZYME INCREASED [None]
  - HEPATIC FAILURE [None]
  - LETHARGY [None]
  - MENTAL STATUS CHANGES [None]
  - MULTI-ORGAN FAILURE [None]
  - OVERDOSE [None]
  - PRODUCT QUALITY ISSUE [None]
  - RENAL FAILURE [None]
  - RHABDOMYOLYSIS [None]
  - SHOCK [None]
  - SOMNOLENCE [None]
